FAERS Safety Report 25843595 (Version 3)
Quarter: 2025Q4

REPORT INFORMATION
  Report Type: Spontaneous
  Country: US (occurrence: US)
  Receive Date: 20250924
  Receipt Date: 20251031
  Transmission Date: 20260118
  Serious: Yes (Other)
  Sender: ALEXION PHARMACEUTICALS
  Company Number: US-AstraZeneca-CH-00955072AP

PATIENT
  Age: 61 Year
  Sex: Female

DRUGS (1)
  1. AIRSUPRA [Suspect]
     Active Substance: ALBUTEROL SULFATE\BUDESONIDE
     Indication: Pulmonary oedema
     Dosage: 90 MICROGRAM
     Route: 065

REACTIONS (6)
  - Product prescribing issue [Unknown]
  - Cardiac failure congestive [Unknown]
  - Product dose omission issue [Unknown]
  - Wrong technique in device usage process [Unknown]
  - Discomfort [Unknown]
  - Device malfunction [Unknown]

NARRATIVE: CASE EVENT DATE: 20250901
